FAERS Safety Report 5096871-9 (Version None)
Quarter: 2006Q3

REPORT INFORMATION
  Report Type: 
  Country: None (occurrence: None)
  Receive Date: 20060901
  Receipt Date: 20060901
  Transmission Date: 20061208
  Serious: Yes (Other)
  Sender: FDA-Public Use
  Company Number: None

PATIENT
  Age: 57 Year
  Sex: Male
  Weight: 117.9352 kg

DRUGS (1)
  1. TRAMADOL HCL [Suspect]
     Indication: SCIATICA
     Dosage: 50MG   4/6 HOURS   PO
     Route: 048
     Dates: start: 20060707, end: 20060901

REACTIONS (1)
  - PRURITUS [None]
